FAERS Safety Report 8248311-6 (Version None)
Quarter: 2012Q1

REPORT INFORMATION
  Report Type: 
  Country: None (occurrence: None)
  Receive Date: 20120330
  Receipt Date: 20120322
  Transmission Date: 20120608
  Serious: Yes (Death, Life-Threatening, Hospitalization, Other)
  Sender: FDA-Public Use
  Company Number: US-BAXTER-2012BAX000027

PATIENT
  Sex: Female

DRUGS (2)
  1. ARALAST NP [Suspect]
     Indication: ALPHA-1 ANTI-TRYPSIN DEFICIENCY
     Route: 065
     Dates: start: 20120315, end: 20120315
  2. ARALAST NP [Suspect]
     Route: 065
     Dates: start: 20120307, end: 20120307

REACTIONS (1)
  - RESPIRATORY FAILURE [None]
